FAERS Safety Report 7857888-1 (Version None)
Quarter: 2011Q4

REPORT INFORMATION
  Report Type: 
  Country: None (occurrence: None)
  Receive Date: 20111027
  Receipt Date: 20110217
  Transmission Date: 20120403
  Serious: No
  Sender: FDA-Public Use
  Company Number: US-BAYER-2011-016392

PATIENT
  Sex: Female
  Weight: 68 kg

DRUGS (13)
  1. VESICARE [Concomitant]
  2. NORVASC [Concomitant]
  3. GLYBURIDE [Concomitant]
  4. SEROQUEL [Concomitant]
  5. ALEVE (CAPLET) [Suspect]
     Indication: PRODUCT USED FOR UNKNOWN INDICATION
     Dosage: DAILY DOSE 6 DF
     Route: 048
     Dates: start: 20110216, end: 20110216
  6. PRILOSEC [Concomitant]
  7. LISINOPRIL [Concomitant]
  8. SIMVASTATIN [Concomitant]
  9. ARIMIDEX [Concomitant]
  10. CALCIUM CARBONATE [Concomitant]
  11. VITAMIN D [Concomitant]
  12. NAMENDA [Concomitant]
  13. ASCORBIC ACID [Concomitant]

REACTIONS (3)
  - RASH ERYTHEMATOUS [None]
  - RASH MACULAR [None]
  - OEDEMA PERIPHERAL [None]
